FAERS Safety Report 7071580-5 (Version None)
Quarter: 2010Q4

REPORT INFORMATION
  Report Type: 
  Country: None (occurrence: None)
  Receive Date: 20101029
  Receipt Date: 20090924
  Transmission Date: 20110411
  Serious: No
  Sender: FDA-Public Use
  Company Number: A0808863A

PATIENT
  Age: 82 Year
  Sex: Female

DRUGS (12)
  1. ADVAIR DISKUS 100/50 [Suspect]
     Indication: CHRONIC OBSTRUCTIVE PULMONARY DISEASE
     Dosage: 1PUFF TWICE PER DAY
     Route: 055
     Dates: start: 20080101
  2. FENOPROFEN CALCIUM [Concomitant]
  3. PRILOSEC [Concomitant]
  4. THYROID [Concomitant]
  5. TAZAC [Concomitant]
  6. DETROL [Concomitant]
  7. TRIAMTERENE AND HYDROCHLOROTHIAZIDE [Concomitant]
  8. TOPROL-XL [Concomitant]
  9. SPIRIVA [Concomitant]
  10. WARFARIN SODIUM [Concomitant]
  11. LOVASTATIN [Concomitant]
  12. AMITRIPTYLINE HCL [Concomitant]

REACTIONS (3)
  - COUGH [None]
  - LACRIMATION INCREASED [None]
  - RHINORRHOEA [None]
